FAERS Safety Report 5939801-7 (Version None)
Quarter: 2008Q4

REPORT INFORMATION
  Report Type: 
  Country: None (occurrence: None)
  Receive Date: 20081031
  Receipt Date: 20081031
  Transmission Date: 20090506
  Serious: No
  Sender: FDA-Public Use
  Company Number: None

PATIENT
  Sex: Female
  Weight: 68.04 kg

DRUGS (3)
  1. CISPLATIN [Suspect]
  2. DOXORUBICIN HYDROCHLORIDE [Suspect]
     Dosage: 77 MG
  3. TAXOL [Suspect]
     Dosage: 275 MG

REACTIONS (3)
  - BLOOD PRESSURE INCREASED [None]
  - DRUG HYPERSENSITIVITY [None]
  - INFUSION RELATED REACTION [None]
